FAERS Safety Report 18448212 (Version 1)
Quarter: 2020Q4

REPORT INFORMATION
  Report Type: Spontaneous
  Country: CA (occurrence: CA)
  Receive Date: 20201030
  Receipt Date: 20201030
  Transmission Date: 20210114
  Serious: Yes (Other)
  Sender: FDA-Public Use
  Company Number: CA-JNJFOC-20201034976

PATIENT
  Age: 28 Year
  Sex: Female

DRUGS (25)
  1. ASACOL [Concomitant]
     Active Substance: MESALAMINE
     Route: 065
  2. ESOMEPRAZOLE MYLAN                 /01479301/ [Concomitant]
     Active Substance: ESOMEPRAZOLE
     Route: 048
  3. M-ESLON [Concomitant]
     Active Substance: MORPHINE SULFATE
     Dosage: EXTENDED RELEASE
     Route: 065
  4. MEZAVANT [Concomitant]
     Active Substance: MESALAMINE
     Route: 065
  5. ONDANSETRON HYDROCHLORIDE. [Concomitant]
     Active Substance: ONDANSETRON HYDROCHLORIDE
     Route: 048
  6. PREDNISONE. [Concomitant]
     Active Substance: PREDNISONE
     Route: 048
  7. AZOLE [Concomitant]
     Active Substance: ALBENDAZOLE
     Route: 065
  8. MORPHINE SULFATE. [Concomitant]
     Active Substance: MORPHINE SULFATE
     Indication: PAIN
     Route: 048
  9. RIVA-RANITIDINE [Concomitant]
     Route: 048
  10. ACETAMINOPHEN. [Concomitant]
     Active Substance: ACETAMINOPHEN
     Indication: PAIN
     Route: 065
  11. RANITIDINE HYDROCHLORIDE. [Concomitant]
     Active Substance: RANITIDINE HYDROCHLORIDE
     Route: 048
  12. INFLIXIMAB, RECOMBINANT [Suspect]
     Active Substance: INFLIXIMAB
     Indication: CROHN^S DISEASE
     Route: 042
  13. CALCIUM CARBONATE. [Concomitant]
     Active Substance: CALCIUM CARBONATE
     Route: 065
  14. RATIO-NYSTATIN [Concomitant]
     Active Substance: NYSTATIN
     Route: 065
  15. DICYCLOMINE HYDROCHLORIDE. [Concomitant]
     Active Substance: DICYCLOMINE HYDROCHLORIDE
     Route: 048
  16. LORAZEPAM. [Concomitant]
     Active Substance: LORAZEPAM
     Route: 048
  17. CALCIUM W/COLECALCIFEROL [Concomitant]
     Active Substance: CALCIUM\CHOLECALCIFEROL
     Route: 065
  18. HUMIRA [Concomitant]
     Active Substance: ADALIMUMAB
     Route: 065
  19. KETAMINE [Concomitant]
     Active Substance: KETAMINE
     Route: 061
  20. METADOL                            /00068902/ [Concomitant]
     Route: 048
  21. PURINETHOL [Concomitant]
     Active Substance: MERCAPTOPURINE
     Route: 048
  22. RATIO-PROCTOSONE [Concomitant]
     Indication: HAEMORRHOIDS
     Route: 061
  23. SALOFALK                           /00747601/ [Concomitant]
     Active Substance: MESALAMINE
     Route: 065
  24. SULCRATE [Concomitant]
     Active Substance: SUCRALFATE
     Route: 048
  25. TARO-ZOLEDRONIC ACID [Concomitant]
     Active Substance: ZOLEDRONIC ACID
     Route: 042

REACTIONS (12)
  - Vein rupture [Not Recovered/Not Resolved]
  - Pharyngeal paraesthesia [Not Recovered/Not Resolved]
  - Weight increased [Not Recovered/Not Resolved]
  - Dehydration [Not Recovered/Not Resolved]
  - Dysphagia [Not Recovered/Not Resolved]
  - Condition aggravated [Not Recovered/Not Resolved]
  - Nasopharyngitis [Not Recovered/Not Resolved]
  - Oropharyngeal pain [Not Recovered/Not Resolved]
  - Myalgia [Not Recovered/Not Resolved]
  - Intentional product use issue [Not Recovered/Not Resolved]
  - Off label use [Not Recovered/Not Resolved]
  - Poor venous access [Not Recovered/Not Resolved]
